FAERS Safety Report 6359782-4 (Version None)
Quarter: 2009Q3

REPORT INFORMATION
  Report Type: 
  Country: None (occurrence: None)
  Receive Date: 20090917
  Receipt Date: 20090909
  Transmission Date: 20100115
  Serious: Yes (Hospitalization, Congenital Anomaly)
  Sender: FDA-Public Use
  Company Number: A0679467A

PATIENT
  Sex: Female
  Weight: 2.8 kg

DRUGS (6)
  1. PAXIL CR [Suspect]
     Indication: ANXIETY
     Dosage: 25MG PER DAY
     Dates: start: 20020101, end: 20060101
  2. VITAMIN TAB [Concomitant]
  3. CHROMAGEN [Concomitant]
  4. ASTHMA MEDICATION [Concomitant]
  5. STEROID [Concomitant]
  6. PREDNISONE [Concomitant]

REACTIONS (3)
  - ATRIAL SEPTAL DEFECT [None]
  - DRUG EXPOSURE DURING PREGNANCY [None]
  - PULMONARY VALVE STENOSIS [None]
